FAERS Safety Report 9207328 (Version 1)
Quarter: 2013Q2

REPORT INFORMATION
  Report Type: Spontaneous
  Country: ES (occurrence: GB)
  Receive Date: 20130403
  Receipt Date: 20130403
  Transmission Date: 20140414
  Serious: Yes (Other)
  Sender: FDA-Public Use
  Company Number: GB-FRI-1000043985

PATIENT
  Age: 85 Year
  Sex: Male
  Weight: 52 kg

DRUGS (1)
  1. ACLIDINIUM BROMIDE [Suspect]
     Indication: CHRONIC OBSTRUCTIVE PULMONARY DISEASE
     Dosage: 644 MCG
     Route: 055
     Dates: start: 20130311, end: 20130312

REACTIONS (4)
  - Hypersensitivity [Recovered/Resolved]
  - Groin pain [Recovered/Resolved]
  - Dysphagia [Recovered/Resolved]
  - Swollen tongue [Recovered/Resolved]
